FAERS Safety Report 11458803 (Version 2)
Quarter: 2015Q4

REPORT INFORMATION
  Report Type: Spontaneous
  Country: CN (occurrence: CN)
  Receive Date: 20150904
  Receipt Date: 20151102
  Transmission Date: 20160304
  Serious: Yes (Hospitalization)
  Sender: FDA-Public Use
  Company Number: CN-PFIZER INC-2015282716

PATIENT
  Age: 64 Year
  Sex: Male

DRUGS (1)
  1. SUTENT [Suspect]
     Active Substance: SUNITINIB MALATE
     Indication: RENAL CELL CARCINOMA
     Dosage: UNK
     Route: 048

REACTIONS (3)
  - Blood creatinine increased [Unknown]
  - Gastric ulcer [Unknown]
  - Drug tolerance [Unknown]
